FAERS Safety Report 17978720 (Version 1)
Quarter: 2020Q3

REPORT INFORMATION
  Report Type: Spontaneous
  Country: US (occurrence: US)
  Receive Date: 20200703
  Receipt Date: 20200703
  Transmission Date: 20201103
  Serious: No
  Sender: FDA-Public Use
  Company Number: US-ASTRAZENECA-2020SE73883

PATIENT
  Sex: Male
  Weight: 170.1 kg

DRUGS (4)
  1. BYDUREON BCISE [Suspect]
     Active Substance: EXENATIDE
     Indication: TYPE 2 DIABETES MELLITUS
     Route: 058
     Dates: start: 2019
  2. JARDIANCE [Concomitant]
     Active Substance: EMPAGLIFLOZIN
  3. BASAGLAR [Concomitant]
     Active Substance: INSULIN GLARGINE
  4. METFORMIN [Concomitant]
     Active Substance: METFORMIN HYDROCHLORIDE

REACTIONS (5)
  - Injection site swelling [Unknown]
  - Device malfunction [Unknown]
  - Device issue [Unknown]
  - Device leakage [Unknown]
  - Injection site haemorrhage [Unknown]
